FAERS Safety Report 7197926-5 (Version None)
Quarter: 2010Q4

REPORT INFORMATION
  Report Type: 
  Country: None (occurrence: None)
  Receive Date: 20101227
  Receipt Date: 20101222
  Transmission Date: 20110411
  Serious: Yes (Hospitalization)
  Sender: FDA-Public Use
  Company Number: IT-ROCHE-743839

PATIENT
  Sex: Female

DRUGS (2)
  1. VESANOID [Suspect]
     Route: 048
     Dates: start: 20101004, end: 20101104
  2. ZAVEDOS [Suspect]
     Dosage: FREQUENCY: EVERY OTHER DAY
     Route: 042
     Dates: start: 20101005, end: 20101011

REACTIONS (2)
  - PSEUDOMONAL SEPSIS [None]
  - SKIN NECROSIS [None]
